FAERS Safety Report 18557104 (Version 1)
Quarter: 2020Q4

REPORT INFORMATION
  Report Type: Spontaneous
  Country: US (occurrence: US)
  Receive Date: 20201129
  Receipt Date: 20201129
  Transmission Date: 20210114
  Serious: No
  Sender: FDA-Public Use
  Company Number: US-GLAXOSMITHKLINE-US2020229460

PATIENT
  Sex: Female

DRUGS (3)
  1. ZEJULA [Suspect]
     Active Substance: NIRAPARIB
     Indication: PRODUCT USED FOR UNKNOWN INDICATION
     Dosage: 100 MG, QD
     Route: 065
  2. ZEJULA [Suspect]
     Active Substance: NIRAPARIB
     Dosage: 200 MG, QD
     Route: 065
  3. ZEJULA [Suspect]
     Active Substance: NIRAPARIB
     Dosage: 300 MG, QD
     Route: 065

REACTIONS (7)
  - Computerised tomogram abnormal [Unknown]
  - White blood cell count decreased [Unknown]
  - Carbohydrate antigen 125 increased [Recovering/Resolving]
  - Positron emission tomogram abnormal [Unknown]
  - Anaemia [Unknown]
  - Lymphadenopathy [Unknown]
  - Nausea [Unknown]
